FAERS Safety Report 8130485-9 (Version None)
Quarter: 2012Q1

REPORT INFORMATION
  Report Type: 
  Country: None (occurrence: None)
  Receive Date: 20120210
  Receipt Date: 20120202
  Transmission Date: 20120608
  Serious: Yes (Disabling)
  Sender: FDA-Public Use
  Company Number: JP-ALLERGAN-1201854US

PATIENT
  Age: 70 Year
  Sex: Male

DRUGS (1)
  1. LUMIGAN [Suspect]
     Indication: NORMAL TENSION GLAUCOMA
     Dosage: 2 GTT, QHS
     Route: 047
     Dates: start: 20100120

REACTIONS (1)
  - PITUITARY TUMOUR [None]
